FAERS Safety Report 10853178 (Version 1)
Quarter: 2015Q1

REPORT INFORMATION
  Report Type: Spontaneous
  Country: US (occurrence: US)
  Receive Date: 20150222
  Receipt Date: 20150222
  Transmission Date: 20150721
  Serious: No
  Sender: FDA-Public Use
  Company Number: US-ALLERGAN-1423402US

PATIENT
  Age: 27 Year
  Sex: Female

DRUGS (4)
  1. PERCOCET [Concomitant]
     Active Substance: ACETAMINOPHEN\OXYCODONE HYDROCHLORIDE
     Dosage: UNK
  2. LYRICA [Concomitant]
     Active Substance: PREGABALIN
     Dosage: UNK
  3. MAGNESIUM [Concomitant]
     Active Substance: MAGNESIUM
     Dosage: 500-1000 MG, QD
     Route: 048
     Dates: start: 20140922
  4. BOTOX [Suspect]
     Active Substance: ONABOTULINUMTOXINA
     Indication: MIGRAINE
     Dosage: 154 UNITS, SINGLE
     Route: 030
     Dates: start: 20141029, end: 20141029

REACTIONS (3)
  - Vertigo [Unknown]
  - Rash vesicular [Unknown]
  - Facial pain [Unknown]

NARRATIVE: CASE EVENT DATE: 20141029
